FAERS Safety Report 7183353-3 (Version None)
Quarter: 2010Q4

REPORT INFORMATION
  Report Type: 
  Country: None (occurrence: None)
  Receive Date: 20101222
  Receipt Date: 20101213
  Transmission Date: 20110411
  Serious: Yes (Hospitalization, Other)
  Sender: FDA-Public Use
  Company Number: JP-JNJFOC-20101006346

PATIENT
  Sex: Female

DRUGS (9)
  1. REMICADE [Suspect]
     Indication: RHEUMATOID ARTHRITIS
     Dosage: 41ST DOSE
     Route: 042
  2. REMICADE [Suspect]
     Dosage: 1ST DOSE
     Route: 042
  3. REMICADE [Suspect]
     Dosage: DOSES 2 THROUGH 40
     Route: 042
  4. REMICADE [Suspect]
     Dosage: 42ND DOSE
     Route: 042
  5. STEROIDS NOS [Suspect]
     Indication: ILL-DEFINED DISORDER
     Route: 048
  6. UNKNOWN THERAPEUTIC AGENT [Suspect]
     Indication: PRODUCT USED FOR UNKNOWN INDICATION
     Route: 048
  7. METHOTREXATE [Concomitant]
     Indication: RHEUMATOID ARTHRITIS
     Dosage: 6-8 MG
     Route: 048
  8. LANOXIN [Concomitant]
     Indication: RHEUMATOID ARTHRITIS
     Route: 048
  9. MUCOSTA [Concomitant]
     Route: 048

REACTIONS (3)
  - ADENOCARCINOMA OF THE CERVIX [None]
  - ARTHRALGIA [None]
  - UTERINE CANCER [None]
